FAERS Safety Report 5340186-8 (Version None)
Quarter: 2007Q2

REPORT INFORMATION
  Report Type: 
  Country: None (occurrence: None)
  Receive Date: 20070531
  Receipt Date: 20070522
  Transmission Date: 20071010
  Serious: Yes (Hospitalization)
  Sender: FDA-Public Use
  Company Number: B0471150A

PATIENT
  Age: 55 Year
  Sex: Female
  Weight: 67 kg

DRUGS (4)
  1. LAPATINIB [Suspect]
     Dosage: 1200MG PER DAY
     Route: 048
     Dates: start: 20070418
  2. CAPECITABINE [Suspect]
     Dosage: 3400MG PER DAY
     Route: 048
     Dates: start: 20070418
  3. ASPIRIN [Concomitant]
     Indication: ARRHYTHMIA
     Dosage: 10MG AS REQUIRED
  4. CO APROVEL [Concomitant]
     Indication: BLOOD PRESSURE
     Dosage: 12.5MG PER DAY

REACTIONS (7)
  - BRAIN OEDEMA [None]
  - COORDINATION ABNORMAL [None]
  - DIPLOPIA [None]
  - FATIGUE [None]
  - HEADACHE [None]
  - NERVOUS SYSTEM DISORDER [None]
  - SPEECH DISORDER [None]
